FAERS Safety Report 7075651-9 (Version None)
Quarter: 2010Q4

REPORT INFORMATION
  Report Type: 
  Country: None (occurrence: None)
  Receive Date: 20101030
  Receipt Date: 20101014
  Transmission Date: 20110411
  Serious: No
  Sender: FDA-Public Use
  Company Number: US-WYE-H18202410

PATIENT

DRUGS (1)
  1. PRISTIQ [Suspect]
     Dosage: UNSPECIFIED

REACTIONS (5)
  - ARTHRALGIA [None]
  - ARTHRITIS [None]
  - HYPOAESTHESIA [None]
  - NEUROPATHY PERIPHERAL [None]
  - PARAESTHESIA [None]
